FAERS Safety Report 10788002 (Version 1)
Quarter: 2015Q1

REPORT INFORMATION
  Report Type: Spontaneous
  Country: CA (occurrence: CA)
  Receive Date: 20150212
  Receipt Date: 20150212
  Transmission Date: 20150721
  Serious: Yes (Other)
  Sender: FDA-Public Use
  Company Number: CA-JNJFOC-20150200184

PATIENT
  Age: 40 Year
  Sex: Male
  Weight: 86.18 kg

DRUGS (2)
  1. IBUPROFEN. [Concomitant]
     Active Substance: IBUPROFEN
     Route: 048
  2. CONCERTA [Suspect]
     Active Substance: METHYLPHENIDATE HYDROCHLORIDE
     Indication: ATTENTION DEFICIT/HYPERACTIVITY DISORDER
     Route: 048

REACTIONS (7)
  - Hypoaesthesia [Unknown]
  - Asthenia [Unknown]
  - Thirst [Unknown]
  - Tremor [Unknown]
  - Hyperhidrosis [Unknown]
  - Pain in extremity [Unknown]
  - Hypoglycaemia [Unknown]
